FAERS Safety Report 4711919-6 (Version None)
Quarter: 2005Q2

REPORT INFORMATION
  Report Type: 
  Country: None (occurrence: None)
  Receive Date: 20050629
  Receipt Date: 20050310
  Transmission Date: 20051028
  Serious: No
  Sender: FDA-Public Use
  Company Number: 05P-163-0293551-00

PATIENT
  Age: 60 Year
  Sex: Female
  Weight: 125 kg

DRUGS (7)
  1. HUMIRA [Suspect]
     Indication: RHEUMATOID ARTHRITIS
     Dosage: 40 MG, 1 IN 2 WK, SUBCUTANEOUS
     Route: 058
     Dates: start: 20030101, end: 20050217
  2. GLUCOPHAGE [Concomitant]
  3. LISINOPRIL [Concomitant]
  4. NABUMETONE [Concomitant]
  5. PREDNISONE [Concomitant]
  6. MISOPROSTOL [Concomitant]
  7. ESOMEPRAZOLE [Concomitant]

REACTIONS (5)
  - CYSTITIS [None]
  - DIABETES MELLITUS [None]
  - NASOPHARYNGITIS [None]
  - PNEUMONIA [None]
  - SINUSITIS [None]
